FAERS Safety Report 4809503-9 (Version None)
Quarter: 2005Q4

REPORT INFORMATION
  Report Type: 
  Country: None (occurrence: None)
  Receive Date: 20051021
  Receipt Date: 20050302
  Transmission Date: 20060501
  Serious: Yes (Hospitalization)
  Sender: FDA-Public Use
  Company Number: US_0502112040

PATIENT
  Sex: Female
  Weight: 68 kg

DRUGS (3)
  1. ZYPREXA [Suspect]
     Dosage: 2.5 MG/2 DAY
     Dates: start: 19981222, end: 20020101
  2. CELEXA [Concomitant]
  3. SEROQUEL [Concomitant]

REACTIONS (3)
  - DEEP VEIN THROMBOSIS [None]
  - DIABETES MELLITUS [None]
  - DYSLIPIDAEMIA [None]
